FAERS Safety Report 20771590 (Version 1)
Quarter: 2022Q2

REPORT INFORMATION
  Report Type: Spontaneous
  Country: GB (occurrence: GB)
  Receive Date: 20220430
  Receipt Date: 20220430
  Transmission Date: 20220721
  Serious: Yes (Hospitalization, Other)
  Sender: FDA-Public Use
  Company Number: GB-MHRA-MED-202204182248363770-ZO2RW

PATIENT

DRUGS (1)
  1. FLUTICASONE [Suspect]
     Active Substance: FLUTICASONE
     Dosage: 12 GTT DAILY; SIX DROPS TWICE DAILY, BOTH NOSTRILS, DURATION- 1 MONTHS
     Route: 045
     Dates: start: 20210811, end: 202109

REACTIONS (1)
  - Mania [Recovered/Resolved with Sequelae]
